FAERS Safety Report 8477833-8 (Version None)
Quarter: 2012Q2

REPORT INFORMATION
  Report Type: 
  Country: None (occurrence: None)
  Receive Date: 20120629
  Receipt Date: 20120625
  Transmission Date: 20120825
  Serious: Yes (Other)
  Sender: FDA-Public Use
  Company Number: US-PFIZER INC-2012153400

PATIENT
  Sex: Female

DRUGS (2)
  1. CELEBREX [Suspect]
     Indication: SWELLING
  2. CELEBREX [Suspect]
     Indication: PAIN
     Dosage: UNK

REACTIONS (2)
  - OSTEOARTHRITIS [None]
  - RENAL IMPAIRMENT [None]
